FAERS Safety Report 15003258 (Version 2)
Quarter: 2018Q3

REPORT INFORMATION
  Report Type: Spontaneous
  Country: US (occurrence: US)
  Receive Date: 20180613
  Receipt Date: 20180702
  Transmission Date: 20181010
  Serious: Yes (Death)
  Sender: FDA-Public Use
  Company Number: US-ABBVIE-18P-163-2386169-00

PATIENT
  Age: 76 Year
  Sex: Female

DRUGS (1)
  1. CREON [Suspect]
     Active Substance: PANCRELIPASE AMYLASE\PANCRELIPASE LIPASE\PANCRELIPASE PROTEASE
     Indication: PRODUCT USED FOR UNKNOWN INDICATION
     Dosage: 2 CAPSULES WITH EACH MEAL, 1 CAPSULE WITH EACH SNACK
     Route: 048
     Dates: start: 20171222

REACTIONS (1)
  - Death [Fatal]

NARRATIVE: CASE EVENT DATE: 20180611
